FAERS Safety Report 19001796 (Version 3)
Quarter: 2023Q2

REPORT INFORMATION
  Report Type: Spontaneous
  Country: DE (occurrence: DE)
  Receive Date: 20210312
  Receipt Date: 20230522
  Transmission Date: 20230722
  Serious: Yes (Death, Hospitalization, Other)
  Sender: FDA-Public Use
  Company Number: DE-AMGEN-DEUSP2021037206

PATIENT

DRUGS (1)
  1. CARFILZOMIB [Suspect]
     Active Substance: CARFILZOMIB
     Indication: Plasma cell myeloma refractory
     Dosage: UNK
     Route: 065

REACTIONS (5)
  - CD4 lymphocytes decreased [Unknown]
  - Infection [Fatal]
  - Pneumonia influenzal [Fatal]
  - Plasma cell myeloma [Fatal]
  - Herpes zoster reactivation [Unknown]
